FAERS Safety Report 21453230 (Version 1)
Quarter: 2022Q4

REPORT INFORMATION
  Report Type: Spontaneous
  Country: US (occurrence: None)
  Receive Date: 20221007
  Receipt Date: 20221007
  Transmission Date: 20230113
  Serious: No
  Sender: FDA-Public Use
  Company Number: None

PATIENT

DRUGS (2)
  1. TRAZODONE HCL [Suspect]
     Active Substance: TRAZODONE HYDROCHLORIDE
     Route: 048
  2. TRAZODONE HCL [Suspect]
     Active Substance: TRAZODONE HYDROCHLORIDE
     Route: 048

REACTIONS (5)
  - Transcription medication error [None]
  - Incorrect dose administered [None]
  - Drug monitoring procedure not performed [None]
  - Product communication issue [None]
  - Product dispensing error [None]
